FAERS Safety Report 16204734 (Version 1)
Quarter: 2019Q2

REPORT INFORMATION
  Report Type: Spontaneous
  Country: BR (occurrence: BR)
  Receive Date: 20190416
  Receipt Date: 20190416
  Transmission Date: 20190711
  Serious: Yes (Hospitalization, Other)
  Sender: FDA-Public Use
  Company Number: PHHY2018BR130539

PATIENT
  Age: 83 Year
  Sex: Male
  Weight: 57 kg

DRUGS (2)
  1. AROMASIN [Suspect]
     Active Substance: EXEMESTANE
     Indication: PRODUCT USED FOR UNKNOWN INDICATION
     Dosage: 25 MG, UNK
     Route: 048
     Dates: start: 20180520, end: 20180725
  2. AFINITOR [Suspect]
     Active Substance: EVEROLIMUS
     Indication: BREAST CANCER
     Dosage: 10 MG, UNK
     Route: 065
     Dates: start: 20180520, end: 20180725

REACTIONS (15)
  - Hyperventilation [Unknown]
  - Anxiety [Unknown]
  - Cough [Unknown]
  - Pneumonitis [Unknown]
  - Respiratory rate increased [Unknown]
  - Sneezing [Unknown]
  - Asthma [Unknown]
  - Wheezing [Unknown]
  - Fatigue [Unknown]
  - Pleural effusion [Unknown]
  - Pyrexia [Unknown]
  - Respiratory failure [Unknown]
  - Crepitations [Unknown]
  - Malaise [Unknown]
  - Dyspnoea [Unknown]
